FAERS Safety Report 7991625-5 (Version None)
Quarter: 2011Q4

REPORT INFORMATION
  Report Type: 
  Country: None (occurrence: None)
  Receive Date: 20111219
  Receipt Date: 20111128
  Transmission Date: 20120403
  Serious: No
  Sender: FDA-Public Use
  Company Number: US-ALLERGAN-1115508US

PATIENT
  Age: 56 Year
  Sex: Male

DRUGS (2)
  1. LUMIGAN [Suspect]
     Indication: PIGMENT DISPERSION SYNDROME
     Dosage: 2 GTT, QHS
     Route: 047
     Dates: start: 20111108, end: 20111111
  2. KETORAL                            /00321701/ [Concomitant]
     Indication: PRODUCT USED FOR UNKNOWN INDICATION
     Dosage: 2 GTT, QAM
     Route: 047

REACTIONS (4)
  - OCULAR HYPERAEMIA [None]
  - ERYTHEMA [None]
  - SKIN IRRITATION [None]
  - EYE IRRITATION [None]
